FAERS Safety Report 12240859 (Version 4)
Quarter: 2017Q2

REPORT INFORMATION
  Report Type: Spontaneous
  Country: US (occurrence: US)
  Receive Date: 20160406
  Receipt Date: 20170526
  Transmission Date: 20170830
  Serious: Yes (Hospitalization, Other)
  Sender: FDA-Public Use
  Company Number: US-ASTRAZENECA-2015SF09180

PATIENT
  Age: 70 Year
  Sex: Female
  Weight: 74.8 kg

DRUGS (8)
  1. CLONIDINE. [Concomitant]
     Active Substance: CLONIDINE
     Dosage: 0.2 MG
  2. BIOTIN [Concomitant]
     Active Substance: BIOTIN
     Indication: ALOPECIA
  3. BYETTA [Suspect]
     Active Substance: EXENATIDE
     Indication: TYPE 2 DIABETES MELLITUS
     Dosage: 250 MCG/2.4 ML PEN - UNKNOWN
     Route: 058
     Dates: start: 2010
  4. BYETTA [Suspect]
     Active Substance: EXENATIDE
     Indication: TYPE 2 DIABETES MELLITUS
     Route: 058
  5. GLIPIZIDE. [Concomitant]
     Active Substance: GLIPIZIDE
  6. BYETTA [Suspect]
     Active Substance: EXENATIDE
     Indication: TYPE 2 DIABETES MELLITUS
     Route: 058
     Dates: start: 2012
  7. VITAMIN B NOS [Concomitant]
     Active Substance: VITAMIN B
  8. VITAMIN D [Concomitant]
     Active Substance: CHOLECALCIFEROL

REACTIONS (18)
  - Cerebrovascular accident [Unknown]
  - Head injury [Unknown]
  - Atrial fibrillation [Unknown]
  - Fall [Unknown]
  - Hypoaesthesia [Unknown]
  - Decreased appetite [Unknown]
  - Memory impairment [Unknown]
  - Weight decreased [Unknown]
  - Intentional device misuse [Unknown]
  - Intentional product misuse [Unknown]
  - Muscular weakness [Unknown]
  - Drug dose omission [Unknown]
  - Product quality issue [Unknown]
  - Blood pressure abnormal [Unknown]
  - Blood glucose increased [Unknown]
  - Dizziness [Unknown]
  - Underdose [Unknown]
  - Drug effect decreased [Unknown]
